FAERS Safety Report 9685656 (Version 2)
Quarter: 2015Q3

REPORT INFORMATION
  Report Type: Spontaneous
  Country: US (occurrence: US)
  Receive Date: 20131113
  Receipt Date: 20150918
  Transmission Date: 20151125
  Serious: No
  Sender: FDA-Public Use
  Company Number: US-GLAXOSMITHKLINE-A1040268A

PATIENT
  Sex: Male

DRUGS (5)
  1. ADVAIR HFA [Concomitant]
     Active Substance: FLUTICASONE PROPIONATE\SALMETEROL XINAFOATE
  2. CARVEDILOL TABLET [Suspect]
     Active Substance: CARVEDILOL
     Indication: VENTRICULAR EXTRASYSTOLES
     Route: 048
     Dates: start: 2009
  3. COREG CR [Suspect]
     Active Substance: CARVEDILOL PHOSPHATE
     Indication: VENTRICULAR EXTRASYSTOLES
     Route: 048
     Dates: start: 2009
  4. CARVEDILOL PHOSPHATE. [Suspect]
     Active Substance: CARVEDILOL PHOSPHATE
     Indication: CARDIAC DISORDER
  5. COREG [Suspect]
     Active Substance: CARVEDILOL
     Indication: VENTRICULAR EXTRASYSTOLES
     Dates: start: 1998

REACTIONS (3)
  - Drug ineffective [Unknown]
  - Off label use [Not Recovered/Not Resolved]
  - Ventricular extrasystoles [Recovered/Resolved]

NARRATIVE: CASE EVENT DATE: 1998
